FAERS Safety Report 22658181 (Version 1)
Quarter: 2023Q2

REPORT INFORMATION
  Report Type: Report from Study
  Country: CA (occurrence: CA)
  Receive Date: 20230630
  Receipt Date: 20230630
  Transmission Date: 20230722
  Serious: Yes (Other)
  Sender: FDA-Public Use
  Company Number: None

PATIENT
  Age: 45 Year
  Sex: Female

DRUGS (3)
  1. METHOTREXATE [Suspect]
     Active Substance: METHOTREXATE
     Indication: Ankylosing spondylitis
     Route: 065
  2. ADALIMUMAB [Suspect]
     Active Substance: ADALIMUMAB
     Indication: Ankylosing spondylitis
     Route: 058
  3. ADALIMUMAB [Suspect]
     Active Substance: ADALIMUMAB
     Indication: Ankylosing spondylitis
     Route: 058

REACTIONS (8)
  - Drug ineffective [Unknown]
  - Dysphonia [Unknown]
  - Fatigue [Unknown]
  - Injection site pain [Unknown]
  - Oropharyngeal pain [Unknown]
  - Pharyngeal swelling [Unknown]
  - Ankylosing spondylitis [Unknown]
  - Arthralgia [Unknown]
